FAERS Safety Report 4510210-0 (Version None)
Quarter: 2004Q4

REPORT INFORMATION
  Report Type: 
  Country: None (occurrence: None)
  Receive Date: 20041122
  Receipt Date: 20041122
  Transmission Date: 20050328
  Serious: Yes (Death, Hospitalization)
  Sender: FDA-Public Use
  Company Number: None

PATIENT
  Age: 96 Year
  Sex: Male

DRUGS (1)
  1. FENTANYL [Suspect]
     Dosage: DRUG DELIVERY SYSTEM

REACTIONS (10)
  - ASPIRATION [None]
  - COUGH [None]
  - DRUG TOLERANCE DECREASED [None]
  - DYSPNOEA [None]
  - HYPERHIDROSIS [None]
  - HYPERSENSITIVITY [None]
  - MEDICATION ERROR [None]
  - OVERDOSE [None]
  - RESPIRATORY DISTRESS [None]
  - UPPER LIMB FRACTURE [None]
